FAERS Safety Report 19276899 (Version 1)
Quarter: 2021Q2

REPORT INFORMATION
  Report Type: Spontaneous
  Country: SA (occurrence: SA)
  Receive Date: 20210520
  Receipt Date: 20210520
  Transmission Date: 20210717
  Serious: Yes (Other)
  Sender: FDA-Public Use
  Company Number: SA-TELIGENT, INC-20210500048

PATIENT
  Age: 13 Year
  Sex: Male

DRUGS (1)
  1. DICLOFENAC SODIUM TOPICAL SOLUTION 1.5% [Suspect]
     Active Substance: DICLOFENAC SODIUM
     Indication: PRODUCT USED FOR UNKNOWN INDICATION

REACTIONS (1)
  - Erythema multiforme [Recovered/Resolved]
